FAERS Safety Report 12317359 (Version 1)
Quarter: 2016Q2

REPORT INFORMATION
  Report Type: Spontaneous
  Country: IT (occurrence: IT)
  Receive Date: 20160429
  Receipt Date: 20160429
  Transmission Date: 20160815
  Serious: Yes (Hospitalization)
  Sender: FDA-Public Use
  Company Number: IT-AUROBINDO-AUR-APL-2016-05085

PATIENT
  Age: 79 Year
  Sex: Male

DRUGS (10)
  1. PREDNISONE. [Concomitant]
     Active Substance: PREDNISONE
     Indication: PRODUCT USED FOR UNKNOWN INDICATION
     Dosage: 12 MG, UNK
     Route: 048
     Dates: start: 20150101, end: 20150909
  2. LANSOPRAZOLE. [Concomitant]
     Active Substance: LANSOPRAZOLE
     Indication: PRODUCT USED FOR UNKNOWN INDICATION
     Route: 065
  3. K FLEBO [Concomitant]
     Indication: PRODUCT USED FOR UNKNOWN INDICATION
     Dosage: 30 MEQ, UNK
     Route: 048
  4. CARVEDILOL. [Concomitant]
     Active Substance: CARVEDILOL
     Indication: PRODUCT USED FOR UNKNOWN INDICATION
     Route: 065
  5. TAMSULOSIN HYDROCHLORIDE. [Concomitant]
     Active Substance: TAMSULOSIN HYDROCHLORIDE
     Indication: PRODUCT USED FOR UNKNOWN INDICATION
     Route: 065
  6. LANTUS [Concomitant]
     Active Substance: INSULIN GLARGINE
     Indication: PRODUCT USED FOR UNKNOWN INDICATION
     Route: 065
  7. CIPROFLOXACIN AUROBINDO 500MG [Suspect]
     Active Substance: CIPROFLOXACIN
     Indication: ULCER
     Dosage: 500 MG, DAILY
     Route: 048
     Dates: start: 20150826, end: 20150909
  8. FUROSEMIDE. [Concomitant]
     Active Substance: FUROSEMIDE
     Indication: PRODUCT USED FOR UNKNOWN INDICATION
     Route: 065
  9. CYCLOPHOSPHAMIDE. [Suspect]
     Active Substance: CYCLOPHOSPHAMIDE
     Indication: AUTOIMMUNE HAEMOLYTIC ANAEMIA
     Dosage: 50 MG, DAILY
     Route: 048
     Dates: start: 20150101, end: 20150905
  10. DIGOXIN. [Concomitant]
     Active Substance: DIGOXIN
     Indication: PRODUCT USED FOR UNKNOWN INDICATION
     Route: 065

REACTIONS (4)
  - Drug interaction [Recovered/Resolved with Sequelae]
  - Neutropenia [Recovered/Resolved with Sequelae]
  - Leukopenia [Recovered/Resolved with Sequelae]
  - Condition aggravated [Recovered/Resolved with Sequelae]

NARRATIVE: CASE EVENT DATE: 20150831
